FAERS Safety Report 6486930-8 (Version None)
Quarter: 2009Q4

REPORT INFORMATION
  Report Type: 
  Country: None (occurrence: None)
  Receive Date: 20091210
  Receipt Date: 20091207
  Transmission Date: 20100525
  Serious: Yes (Other)
  Sender: FDA-Public Use
  Company Number: CHPA2009US23170

PATIENT
  Age: 21 Year
  Sex: Male
  Weight: 65.76 kg

DRUGS (4)
  1. THERAFLU COLD AND SORE THROAT (NCH) [Suspect]
     Indication: OROPHARYNGEAL PAIN
     Dosage: 5 DF, IN A DAY AND HALF
     Route: 048
     Dates: start: 20091202, end: 20091203
  2. THERAFLU COLD AND SORE THROAT (NCH) [Suspect]
     Indication: PYREXIA
  3. THERAFLU COLD AND SORE THROAT (NCH) [Suspect]
     Indication: CHILLS
  4. THERAFLU COLD AND SORE THROAT (NCH) [Suspect]
     Indication: PAIN

REACTIONS (3)
  - DYSPEPSIA [None]
  - DYSPHAGIA [None]
  - PAIN [None]
